FAERS Safety Report 10257107 (Version 1)
Quarter: 2014Q2

REPORT INFORMATION
  Report Type: Spontaneous
  Country: FR (occurrence: FR)
  Receive Date: 20140625
  Receipt Date: 20140625
  Transmission Date: 20141212
  Serious: Yes (Hospitalization)
  Sender: FDA-Public Use
  Company Number: FR-ROCHE-1422065

PATIENT
  Age: 92 Year
  Sex: Male

DRUGS (7)
  1. ROCEPHINE [Suspect]
     Indication: SKIN INFECTION
     Route: 042
     Dates: start: 20140214, end: 20140224
  2. FLAGYL [Suspect]
     Route: 048
     Dates: start: 20140314
  3. AMLOR [Concomitant]
     Route: 048
  4. BISOPROLOL [Concomitant]
     Route: 065
  5. RISPERIDONE [Concomitant]
     Route: 065
  6. KARDEGIC [Concomitant]
     Route: 048
  7. INIPOMP [Concomitant]
     Route: 048

REACTIONS (3)
  - Renal failure [Recovered/Resolved]
  - Clostridium difficile colitis [Recovered/Resolved]
  - Diarrhoea [Recovered/Resolved]
